FAERS Safety Report 14421830 (Version 2)
Quarter: 2018Q1

REPORT INFORMATION
  Report Type: Spontaneous
  Country: FR (occurrence: FR)
  Receive Date: 20180122
  Receipt Date: 20180215
  Transmission Date: 20180509
  Serious: Yes (Other)
  Sender: FDA-Public Use
  Company Number: FR-MERCK KGAA-2040546

PATIENT
  Age: 65 Year
  Sex: Female
  Weight: 63 kg

DRUGS (2)
  1. LEVOTHYROX 100 [Suspect]
     Active Substance: LEVOTHYROXINE SODIUM
     Route: 048
     Dates: start: 20170424, end: 20171020
  2. NOVOTHYROX [Suspect]
     Active Substance: LEVOTHYROXINE SODIUM
     Indication: PRODUCT USED FOR UNKNOWN INDICATION
     Route: 048
     Dates: start: 20170424, end: 20171020

REACTIONS (6)
  - Palpitations [Not Recovered/Not Resolved]
  - Insomnia [Recovered/Resolved]
  - Blood thyroid stimulating hormone [Recovered/Resolved]
  - Arthralgia [Recovering/Resolving]
  - Myalgia [Recovering/Resolving]
  - Diffuse alopecia [Not Recovered/Not Resolved]

NARRATIVE: CASE EVENT DATE: 20170510
